FAERS Safety Report 18240663 (Version 1)
Quarter: 2020Q3

REPORT INFORMATION
  Report Type: Report from Study
  Country: US (occurrence: US)
  Receive Date: 20200908
  Receipt Date: 20200908
  Transmission Date: 20201103
  Serious: Yes (Death)
  Sender: FDA-Public Use
  Company Number: US-PFIZER INC-2020334500

PATIENT
  Age: 59 Year
  Sex: Male
  Weight: 53.5 kg

DRUGS (2)
  1. MANNITOL. [Suspect]
     Active Substance: MANNITOL
     Dosage: 2198 MOSM (INFUSED)
     Route: 042
  2. MANNITOL. [Suspect]
     Active Substance: MANNITOL
     Indication: DIABETIC KETOACIDOSIS
     Dosage: 400 G (INFUSED)
     Route: 042

REACTIONS (6)
  - Lethargy [Fatal]
  - Blood osmolarity increased [Fatal]
  - Cardiac failure [Fatal]
  - Toxicity to various agents [Fatal]
  - Hyponatraemia [Fatal]
  - Fluid overload [Fatal]
